FAERS Safety Report 8611544-0 (Version None)
Quarter: 2012Q3

REPORT INFORMATION
  Report Type: 
  Country: None (occurrence: None)
  Receive Date: 20120822
  Receipt Date: 20120813
  Transmission Date: 20120928
  Serious: Yes (Other)
  Sender: FDA-Public Use
  Company Number: PHHY2012FR055955

PATIENT
  Sex: Male
  Weight: 35 kg

DRUGS (3)
  1. COLCHICINE [Concomitant]
  2. COLCHICINE OPACALCIUM [Concomitant]
  3. ILARIS [Suspect]
     Indication: BRUCELLOSIS
     Dosage: 150 MG, EVERY 8 WEEKS
     Route: 058
     Dates: start: 20110201

REACTIONS (4)
  - PYREXIA [None]
  - ARTHRALGIA [None]
  - ABDOMINAL PAIN [None]
  - INAPPROPRIATE SCHEDULE OF DRUG ADMINISTRATION [None]
